FAERS Safety Report 22308479 (Version 1)
Quarter: 2023Q2

REPORT INFORMATION
  Report Type: Spontaneous
  Country: US (occurrence: None)
  Receive Date: 20230511
  Receipt Date: 20230511
  Transmission Date: 20230721
  Serious: No
  Sender: FDA-Public Use
  Company Number: US-ROCHE-3210645

PATIENT
  Age: 67 Year
  Sex: Female
  Weight: 62.652 kg

DRUGS (1)
  1. OCREVUS [Suspect]
     Active Substance: OCRELIZUMAB
     Indication: Relapsing multiple sclerosis
     Dosage: 600 MG ;ONGOING: YES
     Route: 042
     Dates: start: 2022

REACTIONS (1)
  - Vascular access site extravasation [Unknown]

NARRATIVE: CASE EVENT DATE: 20221028
